FAERS Safety Report 6495870-X (Version None)
Quarter: 2009Q4

REPORT INFORMATION
  Report Type: 
  Country: None (occurrence: None)
  Receive Date: 20091214
  Receipt Date: 20090824
  Transmission Date: 20100525
  Serious: No
  Sender: FDA-Public Use
  Company Number: US-BRISTOL-MYERS SQUIBB COMPANY-14751622

PATIENT
  Age: 26 Year
  Sex: Male
  Weight: 98 kg

DRUGS (2)
  1. ABILIFY [Suspect]
     Dates: start: 20090801
  2. BENADRYL [Concomitant]
     Indication: SLEEP DISORDER

REACTIONS (2)
  - PSYCHIATRIC SYMPTOM [None]
  - SELF ESTEEM DECREASED [None]
